FAERS Safety Report 4851692-4 (Version None)
Quarter: 2005Q4

REPORT INFORMATION
  Report Type: 
  Country: None (occurrence: None)
  Receive Date: 20051209
  Receipt Date: 20051124
  Transmission Date: 20060501
  Serious: Yes (Hospitalization)
  Sender: FDA-Public Use
  Company Number: DSA_27479_2005

PATIENT
  Age: 61 Year
  Sex: Female

DRUGS (6)
  1. ENALAPRIL MALEATE [Suspect]
     Dosage: DF
     Dates: start: 20051021
  2. PRIMAXIN [Suspect]
     Indication: PYREXIA
     Dosage: 1 G TID IV
     Route: 042
     Dates: start: 20051123, end: 20051027
  3. BROMAZEPAM [Concomitant]
  4. CYTARABINE [Concomitant]
  5. DEXAMETHASONE [Concomitant]
  6. METHOTREXATE [Concomitant]

REACTIONS (2)
  - CONVULSION [None]
  - PYREXIA [None]
